FAERS Safety Report 18243424 (Version 1)
Quarter: 2020Q3

REPORT INFORMATION
  Report Type: Spontaneous
  Country: DE (occurrence: JP)
  Receive Date: 20200908
  Receipt Date: 20200908
  Transmission Date: 20201103
  Serious: Yes (Other)
  Sender: FDA-Public Use
  Company Number: JP-ELI_LILLY_AND_COMPANY-JP202009000732

PATIENT

DRUGS (4)
  1. IRINOTECAN [Concomitant]
     Active Substance: IRINOTECAN
     Indication: COLON CANCER
     Dosage: UNK
  2. FOLINIC ACID [Concomitant]
     Active Substance: LEUCOVORIN
     Indication: COLON CANCER
     Dosage: UNK
  3. FLUOROURACIL. [Concomitant]
     Active Substance: FLUOROURACIL
     Indication: COLON CANCER
     Dosage: UNK
  4. ERBITUX [Suspect]
     Active Substance: CETUXIMAB
     Indication: COLON CANCER
     Dosage: UNK UNK, UNKNOWN
     Route: 065

REACTIONS (1)
  - Comminuted fracture [Unknown]
